FAERS Safety Report 12786787 (Version 1)
Quarter: 2016Q3

REPORT INFORMATION
  Report Type: Spontaneous
  Country: US (occurrence: US)
  Receive Date: 20160927
  Receipt Date: 20160927
  Transmission Date: 20161109
  Serious: Yes (Hospitalization)
  Sender: FDA-Public Use
  Company Number: None

PATIENT
  Age: 12 Year
  Sex: Male

DRUGS (10)
  1. CYCLOPHOSPHAMIDE. [Suspect]
     Active Substance: CYCLOPHOSPHAMIDE
     Dates: end: 20160809
  2. DEXAMETHASONE. [Suspect]
     Active Substance: DEXAMETHASONE
     Dates: end: 20160717
  3. CYTARABINE. [Suspect]
     Active Substance: CYTARABINE
     Dates: end: 20160226
  4. THIOGUANINE (6-TG) [Suspect]
     Active Substance: THIOGUANINE ANHYDROUS
     Dates: end: 20160821
  5. DOXORUBICIN HYDROCHLORIDE. [Suspect]
     Active Substance: DOXORUBICIN HYDROCHLORIDE
     Dates: end: 20160711
  6. MERCAPTOPURINE. [Suspect]
     Active Substance: MERCAPTOPURINE
     Dates: end: 20160615
  7. ONCASPAR [Suspect]
     Active Substance: PEGASPARGASE
     Dates: end: 20160823
  8. VINCRISTINE SULFATE. [Suspect]
     Active Substance: VINCRISTINE SULFATE
     Dates: end: 20160829
  9. METHOTREXATE. [Suspect]
     Active Substance: METHOTREXATE
     Dates: end: 20160816
  10. PREDNISONE. [Concomitant]
     Active Substance: PREDNISONE
     Dates: end: 20151126

REACTIONS (2)
  - Pneumonia [None]
  - Hypotension [None]

NARRATIVE: CASE EVENT DATE: 20160913
